FAERS Safety Report 22136943 (Version 2)
Quarter: 2023Q2

REPORT INFORMATION
  Report Type: Spontaneous
  Country: US (occurrence: US)
  Receive Date: 20230324
  Receipt Date: 20230613
  Transmission Date: 20230722
  Serious: No
  Sender: FDA-Public Use
  Company Number: US-BRISTOL-MYERS SQUIBB COMPANY-2023-042437

PATIENT
  Age: 87 Year
  Sex: Female

DRUGS (1)
  1. REVLIMID [Suspect]
     Active Substance: LENALIDOMIDE
     Indication: Product used for unknown indication
     Dosage: 5MG DAILY FOR 14 DAYS
     Route: 048
     Dates: start: 202109

REACTIONS (4)
  - Erythema [Unknown]
  - Skin warm [Unknown]
  - Off label use [Unknown]
  - Product prescribing issue [Unknown]
